FAERS Safety Report 22193511 (Version 2)
Quarter: 2023Q2

REPORT INFORMATION
  Report Type: Spontaneous
  Country: US (occurrence: US)
  Receive Date: 20230410
  Receipt Date: 20230427
  Transmission Date: 20230721
  Serious: Yes (Hospitalization)
  Sender: FDA-Public Use
  Company Number: US-PFIZER INC-202300147663

PATIENT
  Age: 77 Year
  Sex: Female
  Weight: 63.946 kg

DRUGS (5)
  1. VYNDAMAX [Suspect]
     Active Substance: TAFAMIDIS
     Indication: Amyloidosis
     Dosage: 61 MG, 1X/DAY
     Route: 048
  2. CANDESARTAN [Concomitant]
     Active Substance: CANDESARTAN
     Indication: Cardiac disorder
     Dosage: 4 MG, 1X/DAY
     Route: 048
     Dates: start: 2022
  3. FARXIGA [Concomitant]
     Active Substance: DAPAGLIFLOZIN PROPANEDIOL
     Indication: Amyloidosis
     Dosage: UNK
  4. METOPROLOL SUCCINATE [Concomitant]
     Active Substance: METOPROLOL SUCCINATE
     Indication: Cardiac disorder
     Dosage: 100 MG, 2X/DAY
     Route: 048
  5. FUROSEMIDE [Concomitant]
     Active Substance: FUROSEMIDE
     Indication: Fluid retention
     Dosage: 20 MG, AS NEEDED

REACTIONS (3)
  - Renal disorder [Unknown]
  - Pulmonary thrombosis [Unknown]
  - Malaise [Unknown]
